FAERS Safety Report 9733827 (Version 1)
Quarter: 2013Q4

REPORT INFORMATION
  Report Type: Spontaneous
  Country: US (occurrence: US)
  Receive Date: 20131205
  Receipt Date: 20131205
  Transmission Date: 20140711
  Serious: Yes (Other)
  Sender: FDA-Public Use
  Company Number: US-BAYER-2013-147462

PATIENT
  Age: 37 Year
  Sex: Female
  Weight: 109.75 kg

DRUGS (21)
  1. YAZ [Suspect]
  2. PROTONIX [Concomitant]
     Dosage: 40 MG, UNK
     Route: 048
  3. NASONEX [Concomitant]
     Dosage: 50MCG
     Route: 045
  4. LORAZEPAM [Concomitant]
     Dosage: 0.5 MG, UNK
     Route: 048
  5. ZOMIG [Concomitant]
     Dosage: 5 MG, UNK
  6. MEDROL [Concomitant]
     Dosage: 4 MG, UNK
  7. SOMA [Concomitant]
     Dosage: 350 MG, UNK
     Route: 048
  8. OMNICEF [Concomitant]
     Dosage: 300 MG, UNK
  9. MIDRIN [Concomitant]
     Dosage: 325 MG, UNK
  10. MIDRIN [Concomitant]
     Dosage: 100 MG, UNK
  11. MIDRIN [Concomitant]
     Dosage: 65 MG, UNK
     Route: 048
  12. AMBIEN [Concomitant]
     Dosage: 10 MG, UNK
     Route: 048
  13. PREDNISONE [Concomitant]
     Dosage: 10 MG, UNK
  14. FLEXERIL [Concomitant]
     Dosage: 5 MG, UNK
     Route: 048
  15. ACTOS [Concomitant]
     Dosage: 30 MG, UNK
     Route: 048
  16. ASMANEX [Concomitant]
     Route: 045
  17. ALBUTEROL SULFATE [Concomitant]
     Dosage: 90 MCG
     Route: 045
  18. METROGEL [Concomitant]
  19. METFORMIN HYDROCHLORIDE [Concomitant]
     Dosage: 500 MG, UNK
     Route: 048
  20. LEVSIN [Concomitant]
     Dosage: 0.125 MG, UNK
  21. TRICOR [Concomitant]
     Dosage: 145 MG, UNK

REACTIONS (2)
  - Pulmonary embolism [None]
  - Deep vein thrombosis [None]
